FAERS Safety Report 5775042-4 (Version None)
Quarter: 2008Q2

REPORT INFORMATION
  Report Type: 
  Country: None (occurrence: None)
  Receive Date: 20080617
  Receipt Date: 20080606
  Transmission Date: 20081010
  Serious: Yes (Hospitalization)
  Sender: FDA-Public Use
  Company Number: JP-JNJFOC-20080104932

PATIENT
  Sex: Male
  Weight: 57 kg

DRUGS (7)
  1. REMICADE [Suspect]
     Route: 042
  2. REMICADE [Suspect]
     Indication: CROHN'S DISEASE
     Route: 042
  3. IMURAN [Suspect]
     Indication: CROHN'S DISEASE
     Route: 048
  4. ELENTAL [Suspect]
     Indication: CROHN'S DISEASE
     Route: 048
  5. FLAGYL [Suspect]
     Indication: CROHN'S DISEASE
     Route: 048
  6. PENTASA [Concomitant]
  7. SAXIZON [Concomitant]
     Indication: CROHN'S DISEASE

REACTIONS (3)
  - PLEURAL EFFUSION [None]
  - PNEUMONIA [None]
  - TUBERCULOSIS [None]
